FAERS Safety Report 4432461-6 (Version None)
Quarter: 2004Q3

REPORT INFORMATION
  Report Type: 
  Country: None (occurrence: None)
  Receive Date: 20040820
  Receipt Date: 20040806
  Transmission Date: 20050211
  Serious: Yes (Hospitalization, Other)
  Sender: FDA-Public Use
  Company Number: 2004-06597

PATIENT
  Age: 44 Year
  Sex: Male

DRUGS (10)
  1. EMTRIVA [Suspect]
     Indication: HIV INFECTION
     Dosage: 200 MG, ONCE A DAY, ORAL
     Route: 048
     Dates: start: 20031228
  2. VIREAD [Suspect]
     Indication: HIV INFECTION
     Dosage: 300 MG, ONCE A DAY, ORAL
     Route: 048
     Dates: start: 20031228
  3. KALETRA [Concomitant]
  4. BACTRIM DS [Concomitant]
  5. AZITHROMYCIN [Concomitant]
  6. DEXAMETHASONE [Concomitant]
  7. HYDROCHLOROTHIAZIDE [Concomitant]
  8. LABETALOL HCL [Concomitant]
  9. VALPROIC ACID [Concomitant]
  10. DIFLUCAN [Concomitant]

REACTIONS (21)
  - ASTHENIA [None]
  - BLOOD ANTIDIURETIC HORMONE ABNORMAL [None]
  - BONE MARROW DEPRESSION [None]
  - CYTOMEGALOVIRUS INFECTION [None]
  - DEHYDRATION [None]
  - DIABETES MELLITUS INADEQUATE CONTROL [None]
  - DIABETIC HYPERGLYCAEMIC COMA [None]
  - DIFFICULTY IN WALKING [None]
  - DRUG TOXICITY [None]
  - FAECAL OCCULT BLOOD POSITIVE [None]
  - HYDROCEPHALUS [None]
  - HYPEROSMOLAR STATE [None]
  - HYPONATRAEMIA [None]
  - LETHARGY [None]
  - MENTAL STATUS CHANGES [None]
  - METABOLIC ACIDOSIS [None]
  - METASTASES TO BONE MARROW [None]
  - NEPHROPATHY [None]
  - PANCYTOPENIA [None]
  - RENAL FAILURE ACUTE [None]
  - SOMNOLENCE [None]
